FAERS Safety Report 10740211 (Version 1)
Quarter: 2015Q1

REPORT INFORMATION
  Report Type: Spontaneous
  Country: US (occurrence: US)
  Receive Date: 20150127
  Receipt Date: 20150127
  Transmission Date: 20150721
  Serious: Yes (Other)
  Sender: FDA-Public Use
  Company Number: US-ACCORD-028177

PATIENT
  Age: 69 Year
  Sex: Male

DRUGS (3)
  1. SILDENAFIL. [Concomitant]
     Active Substance: SILDENAFIL
     Dosage: LOW DOSE
     Route: 048
  2. BICALUTAMIDE. [Suspect]
     Active Substance: BICALUTAMIDE
     Indication: PRIAPISM
     Dosage: INDICATION: RECURRENT ISCHEMIC PRIAPISM
     Route: 048
  3. HYDROCHLOROTHIAZIDE. [Concomitant]
     Active Substance: HYDROCHLOROTHIAZIDE
     Indication: HYPERTENSION

REACTIONS (6)
  - Gynaecomastia [Recovering/Resolving]
  - Prostate cancer [Unknown]
  - Libido decreased [Recovering/Resolving]
  - Testicular atrophy [Recovering/Resolving]
  - Erectile dysfunction [Recovered/Resolved]
  - Off label use [Unknown]
